FAERS Safety Report 5620749-2 (Version None)
Quarter: 2008Q1

REPORT INFORMATION
  Report Type: 
  Country: None (occurrence: None)
  Receive Date: 20080208
  Receipt Date: 20080130
  Transmission Date: 20080703
  Serious: Yes (Death, Hospitalization, Other)
  Sender: FDA-Public Use
  Company Number: JP-MERCK-0802USA00511

PATIENT
  Age: 86 Year
  Sex: Male

DRUGS (7)
  1. PEPCID RPD [Suspect]
     Route: 048
     Dates: start: 20070116
  2. NORVASC [Concomitant]
     Route: 048
     Dates: start: 20070116
  3. MUCOSTA [Concomitant]
     Route: 048
     Dates: start: 20070116
  4. LOXONIN [Concomitant]
     Route: 048
     Dates: start: 20070116
  5. MAGNESIUM OXIDE [Concomitant]
     Route: 048
     Dates: start: 20070116
  6. OXYCONTIN [Concomitant]
     Route: 048
     Dates: start: 20070116
  7. NOVAMIN (PROCHLORPERAZINE MESYLATE) [Concomitant]
     Route: 048
     Dates: start: 20070116

REACTIONS (3)
  - ALTERED STATE OF CONSCIOUSNESS [None]
  - DEATH [None]
  - GLOSSOPTOSIS [None]
